FAERS Safety Report 7530988-1 (Version None)
Quarter: 2011Q2

REPORT INFORMATION
  Report Type: 
  Country: None (occurrence: None)
  Receive Date: 20110608
  Receipt Date: 20110126
  Transmission Date: 20111010
  Serious: Yes (Other)
  Sender: FDA-Public Use
  Company Number: FR-BAYER-2011-008919

PATIENT
  Age: 46 Year
  Sex: Female
  Weight: 53 kg

DRUGS (1)
  1. MIRENA [Suspect]
     Indication: PRODUCT USED FOR UNKNOWN INDICATION
     Dosage: 20 ?G, CONT
     Route: 015
     Dates: start: 20040301, end: 20080701

REACTIONS (6)
  - METASTASIS [None]
  - UTERINE CANCER [None]
  - ABDOMINAL DISTENSION [None]
  - OVARIAN EPITHELIAL CANCER [None]
  - GENITAL HAEMORRHAGE [None]
  - ABDOMINAL PAIN [None]
